FAERS Safety Report 11227671 (Version 1)
Quarter: 2015Q2

REPORT INFORMATION
  Report Type: Spontaneous
  Country: US (occurrence: None)
  Receive Date: 20150626
  Receipt Date: 20150626
  Transmission Date: 20150821
  Serious: Yes (Disabling, Other)
  Sender: FDA-Public Use
  Company Number: None

PATIENT
  Age: 63 Year
  Sex: Male
  Weight: 56.7 kg

DRUGS (5)
  1. PROAIR HFA [Concomitant]
     Active Substance: ALBUTEROL SULFATE
  2. DULERA [Suspect]
     Active Substance: FORMOTEROL FUMARATE DIHYDRATE\MOMETASONE FUROATE
     Indication: BRONCHITIS CHRONIC
     Route: 055
     Dates: start: 20131012, end: 20131012
  3. DULERA [Suspect]
     Active Substance: FORMOTEROL FUMARATE DIHYDRATE\MOMETASONE FUROATE
     Indication: CHRONIC OBSTRUCTIVE PULMONARY DISEASE
     Route: 055
     Dates: start: 20131012, end: 20131012
  4. ATORVASTATIN [Concomitant]
     Active Substance: ATORVASTATIN
  5. BAYER [Concomitant]
     Active Substance: ASPIRIN

REACTIONS (9)
  - Impaired driving ability [None]
  - Influenza like illness [None]
  - Pyrexia [None]
  - Visual impairment [None]
  - Pain [None]
  - Chills [None]
  - Lung infection [None]
  - Night blindness [None]
  - Cataract [None]

NARRATIVE: CASE EVENT DATE: 20141018
